FAERS Safety Report 19250203 (Version 2)
Quarter: 2021Q4

REPORT INFORMATION
  Report Type: Spontaneous
  Country: US (occurrence: US)
  Receive Date: 20210513
  Receipt Date: 20211203
  Transmission Date: 20220303
  Serious: No
  Sender: FDA-Public Use
  Company Number: US-SANOFI-00589148

PATIENT
  Age: 51 Year
  Sex: Male

DRUGS (1)
  1. DUPIXENT [Suspect]
     Active Substance: DUPILUMAB
     Dosage: 300 MG, QOW
     Route: 058
     Dates: start: 20210223

REACTIONS (7)
  - Erythema [Unknown]
  - Eye disorder [Unknown]
  - Muscle spasms [Unknown]
  - Pain in extremity [Unknown]
  - Asthenia [Unknown]
  - Drug intolerance [Unknown]
  - Malaise [Unknown]

NARRATIVE: CASE EVENT DATE: 20210301
